FAERS Safety Report 15991856 (Version 2)
Quarter: 2019Q1

REPORT INFORMATION
  Report Type: Report from Study
  Country: US (occurrence: US)
  Receive Date: 20190221
  Receipt Date: 20190321
  Transmission Date: 20190418
  Serious: Yes (Other)
  Sender: FDA-Public Use
  Company Number: US-TEVA-2019-US-1013746

PATIENT

DRUGS (2)
  1. PROSTAGLANDIN E1 [Suspect]
     Active Substance: ALPROSTADIL
     Indication: PULMONARY HYPERTENSION
     Route: 065
  2. PROSTAGLANDIN E1 [Suspect]
     Active Substance: ALPROSTADIL
     Indication: CONGENITAL DIAPHRAGMATIC HERNIA

REACTIONS (1)
  - Left-to-right cardiac shunt [Unknown]
